FAERS Safety Report 4604029-X (Version None)
Quarter: 2005Q1

REPORT INFORMATION
  Report Type: 
  Country: None (occurrence: None)
  Receive Date: 20050309
  Receipt Date: 20050309
  Transmission Date: 20050727
  Serious: No
  Sender: FDA-Public Use
  Company Number: None

PATIENT
  Age: 51 Year
  Sex: Female

DRUGS (1)
  1. RISPERDAL CONSTA [Suspect]
     Dosage: THOUGHT TO BE 25 MG, IM    EVERY 2 WEEKS
     Route: 030

REACTIONS (12)
  - ACTIVITIES OF DAILY LIVING IMPAIRED [None]
  - DEPRESSED MOOD [None]
  - EYE DISORDER [None]
  - FEAR [None]
  - FEELING ABNORMAL [None]
  - FEELING OF DESPAIR [None]
  - HEARING IMPAIRED [None]
  - LIBIDO DECREASED [None]
  - MARITAL PROBLEM [None]
  - REFLEXES ABNORMAL [None]
  - THINKING ABNORMAL [None]
  - VISUAL DISTURBANCE [None]
